FAERS Safety Report 4876141-1 (Version None)
Quarter: 2006Q1

REPORT INFORMATION
  Report Type: 
  Country: None (occurrence: None)
  Receive Date: 20060106
  Receipt Date: 20060104
  Transmission Date: 20060701
  Serious: Yes (Other)
  Sender: FDA-Public Use
  Company Number: 200512220BWH

PATIENT
  Sex: Female

DRUGS (1)
  1. AVELOX [Suspect]

REACTIONS (4)
  - CONVULSION [None]
  - HAEMATOMA [None]
  - OBSTRUCTIVE AIRWAYS DISORDER [None]
  - TONGUE BITING [None]
